FAERS Safety Report 16140189 (Version 1)
Quarter: 2019Q2

REPORT INFORMATION
  Report Type: Spontaneous
  Country: US (occurrence: US)
  Receive Date: 20190329
  Receipt Date: 20190329
  Transmission Date: 20190711
  Serious: Yes (Death)
  Sender: FDA-Public Use
  Company Number: None

PATIENT
  Age: 68 Year
  Sex: Male
  Weight: 120 kg

DRUGS (6)
  1. SOTALOL 80 MG [Concomitant]
     Active Substance: SOTALOL
     Dates: start: 20190316, end: 20190316
  2. DILTIAZEM 25 MG [Concomitant]
     Dates: start: 20190315, end: 20190315
  3. LOPRESSOR 2.5 MG [Concomitant]
     Dates: start: 20190315, end: 20190316
  4. PROTONIX 40 MG [Concomitant]
     Dates: start: 20190316, end: 20190316
  5. TAMSULOSIN 0.4 MG [Concomitant]
     Active Substance: TAMSULOSIN
     Dates: start: 20190316, end: 20190316
  6. DEFINITY [Suspect]
     Active Substance: PERFLUTREN
     Indication: CARDIAC IMAGING PROCEDURE
     Dosage: ?          OTHER FREQUENCY:ONCE;?
     Route: 040
     Dates: start: 20190316, end: 20190316

REACTIONS (4)
  - Therapy non-responder [None]
  - Seizure [None]
  - Cardio-respiratory arrest [None]
  - Sinus bradycardia [None]

NARRATIVE: CASE EVENT DATE: 20190316
